FAERS Safety Report 4799980-4 (Version None)
Quarter: 2005Q4

REPORT INFORMATION
  Report Type: 
  Country: None (occurrence: None)
  Receive Date: 20051012
  Receipt Date: 20051012
  Transmission Date: 20060501
  Serious: Yes (Hospitalization)
  Sender: FDA-Public Use
  Company Number: None

PATIENT
  Age: 27 Year
  Sex: Male
  Weight: 86.1834 kg

DRUGS (3)
  1. SEROQUEL [Suspect]
     Indication: BIPOLAR DISORDER
     Dosage: 100MG  BID   PO
     Route: 048
     Dates: start: 20050225, end: 20050315
  2. SEROQUEL [Suspect]
     Indication: MANIA
     Dosage: 100MG  BID   PO
     Route: 048
     Dates: start: 20050225, end: 20050315
  3. SEROQUEL [Suspect]
     Indication: SCHIZOPHRENIA
     Dosage: 100MG  BID   PO
     Route: 048
     Dates: start: 20050225, end: 20050315

REACTIONS (7)
  - BLEPHAROSPASM [None]
  - CEREBROVASCULAR ACCIDENT [None]
  - FACIAL PALSY [None]
  - HYPOAESTHESIA ORAL [None]
  - OVERDOSE [None]
  - SUICIDE ATTEMPT [None]
  - TREATMENT NONCOMPLIANCE [None]
